FAERS Safety Report 7306374-6 (Version None)
Quarter: 2011Q1

REPORT INFORMATION
  Report Type: 
  Country: None (occurrence: None)
  Receive Date: 20110222
  Receipt Date: 20110214
  Transmission Date: 20110831
  Serious: Yes (Hospitalization)
  Sender: FDA-Public Use
  Company Number: FR-B.I. PHARMACEUTICALS,INC./RIDGEFIELD-2011-FF-00163FF

PATIENT
  Age: 77 Year
  Sex: Female

DRUGS (1)
  1. PRADAXA [Suspect]
     Indication: HIP ARTHROPLASTY
     Route: 048

REACTIONS (2)
  - PULMONARY EMBOLISM [None]
  - FALL [None]
